FAERS Safety Report 8458371 (Version 2)
Quarter: 2013Q2

REPORT INFORMATION
  Report Type: Report from Study
  Country: MX (occurrence: MX)
  Receive Date: 20120314
  Receipt Date: 20130419
  Transmission Date: 20140414
  Serious: Yes (Death, Disabling)
  Sender: FDA-Public Use
  Company Number: PHHY2012MX021656

PATIENT
  Age: 83 Year
  Sex: Female

DRUGS (1)
  1. STALEVO [Suspect]
     Indication: PARKINSON^S DISEASE
     Dosage: 2 DF, (200 ENTA/50 LEVO /12.5 CARBI MG) PER DAY
     Route: 048

REACTIONS (4)
  - Myocardial infarction [Fatal]
  - Depression [Fatal]
  - Parkinson^s disease [Fatal]
  - Muscle rigidity [Unknown]
